FAERS Safety Report 13332462 (Version 1)
Quarter: 2017Q1

REPORT INFORMATION
  Report Type: Spontaneous
  Country: US (occurrence: US)
  Receive Date: 20170313
  Receipt Date: 20170313
  Transmission Date: 20170428
  Serious: No
  Sender: FDA-Public Use
  Company Number: None

PATIENT
  Sex: Male
  Weight: 98.06 kg

DRUGS (3)
  1. ACTHAR [Suspect]
     Active Substance: CORTICOTROPIN
  2. RASUVO [Suspect]
     Active Substance: METHOTREXATE SODIUM
  3. ORENCIA [Suspect]
     Active Substance: ABATACEPT

REACTIONS (1)
  - Hypoaesthesia [None]
